FAERS Safety Report 13182078 (Version 1)
Quarter: 2017Q1

REPORT INFORMATION
  Report Type: Spontaneous
  Country: US (occurrence: US)
  Receive Date: 20170202
  Receipt Date: 20170202
  Transmission Date: 20170428
  Serious: Yes (Disabling)
  Sender: FDA-Public Use
  Company Number: None

PATIENT
  Age: 35 Year
  Sex: Female
  Weight: 72 kg

DRUGS (8)
  1. MACRODANTIN [Suspect]
     Active Substance: NITROFURANTOIN
     Indication: BLADDER PAIN
     Dosage: ?          QUANTITY:1 TABLET(S);?
     Route: 048
     Dates: start: 20160901, end: 20161201
  2. LEVOTHYROXINE. [Concomitant]
     Active Substance: LEVOTHYROXINE
  3. OMEPREZOLE [Concomitant]
     Active Substance: OMEPRAZOLE
  4. VITAMIN D3 [Concomitant]
     Active Substance: CHOLECALCIFEROL
  5. NAPROXEN. [Concomitant]
     Active Substance: NAPROXEN
  6. NORETHINDRONE. [Concomitant]
     Active Substance: NORETHINDRONE
  7. MISOPROSTAL [Concomitant]
  8. DETROL LA [Concomitant]
     Active Substance: TOLTERODINE TARTRATE

REACTIONS (3)
  - Trigeminal neuralgia [None]
  - Neuropathy peripheral [None]
  - Occipital neuralgia [None]

NARRATIVE: CASE EVENT DATE: 20161201
